FAERS Safety Report 9950166 (Version 1)
Quarter: 2014Q1

REPORT INFORMATION
  Report Type: Report from Study
  Country: US (occurrence: US)
  Receive Date: 20140304
  Receipt Date: 20140304
  Transmission Date: 20141002
  Serious: No
  Sender: FDA-Public Use
  Company Number: US-ABBVIE-13P-163-1067694-00

PATIENT
  Age: 18 Year
  Sex: Female

DRUGS (6)
  1. HUMIRA [Suspect]
     Indication: COLITIS ULCERATIVE
     Route: 058
     Dates: start: 20130304
  2. HYDROCORT [Suspect]
     Indication: COLITIS ULCERATIVE
     Route: 054
  3. BUDESONIDE [Suspect]
     Indication: COLITIS ULCERATIVE
  4. CORTIFOAM 10% SOLUTION [Concomitant]
     Indication: COLITIS ULCERATIVE
     Route: 054
  5. VSL#3 [Concomitant]
     Indication: COLITIS ULCERATIVE
  6. MILK OF MAGNESIA [Concomitant]
     Indication: CONSTIPATION
     Dosage: 2 TABLESPOONS QHS

REACTIONS (2)
  - Abdominal distension [Not Recovered/Not Resolved]
  - Abdominal discomfort [Not Recovered/Not Resolved]
